FAERS Safety Report 10400108 (Version 2)
Quarter: 2014Q4

REPORT INFORMATION
  Report Type: Spontaneous
  Country: US (occurrence: US)
  Receive Date: 20140821
  Receipt Date: 20141017
  Transmission Date: 20150528
  Serious: Yes (Other)
  Sender: FDA-Public Use
  Company Number: US-PFIZER INC-2014231380

PATIENT
  Age: 9 Month
  Sex: Male

DRUGS (2)
  1. RAPAMUNE [Suspect]
     Active Substance: SIROLIMUS
     Dosage: UNK
  2. SABRIL [Suspect]
     Active Substance: VIGABATRIN
     Indication: TEMPORAL LOBE EPILEPSY
     Dosage: 1250 MG, DAILY
     Route: 048
     Dates: start: 20140131

REACTIONS (4)
  - Infantile spitting up [Unknown]
  - Infantile spasms [Unknown]
  - Drug dose omission [Unknown]
  - Tic [Unknown]

NARRATIVE: CASE EVENT DATE: 20140701
